FAERS Safety Report 14933568 (Version 1)
Quarter: 2018Q2

REPORT INFORMATION
  Report Type: Spontaneous
  Country: FI (occurrence: FI)
  Receive Date: 20180524
  Receipt Date: 20180524
  Transmission Date: 20180711
  Serious: Yes (Life-Threatening)
  Sender: FDA-Public Use
  Company Number: FI-FERRINGPH-2018FE02578

PATIENT

DRUGS (4)
  1. PARACETAMOL [Concomitant]
     Active Substance: ACETAMINOPHEN
     Indication: PRODUCT USED FOR UNKNOWN INDICATION
     Dosage: 600 MG, 1 TIME DAILY
     Route: 048
  2. DITRIM DUPLO [Concomitant]
     Active Substance: SULFADIAZINE\TRIMETHOPRIM
     Indication: PROPHYLAXIS
     Dosage: 3 DF, WEEKLY
     Route: 047
  3. PICOPREP [Suspect]
     Active Substance: ANHYDROUS CITRIC ACID\MAGNESIUM OXIDE\SODIUM PICOSULFATE
     Indication: PRODUCT USED FOR UNKNOWN INDICATION
     Dosage: 1 DF, 1 TIME DAILY
     Route: 048
     Dates: start: 20180417, end: 20180417
  4. AMBISOME [Concomitant]
     Active Substance: AMPHOTERICIN B
     Indication: PROPHYLAXIS
     Dosage: 200 MG, WEEKLY
     Route: 042

REACTIONS (2)
  - Electrolyte imbalance [Recovering/Resolving]
  - Lactic acidosis [Recovering/Resolving]

NARRATIVE: CASE EVENT DATE: 20180417
